FAERS Safety Report 16062678 (Version 7)
Quarter: 2019Q2

REPORT INFORMATION
  Report Type: Spontaneous
  Country: US (occurrence: US)
  Receive Date: 20190312
  Receipt Date: 20190612
  Transmission Date: 20190711
  Serious: No
  Sender: FDA-Public Use
  Company Number: PHEH2019US010102

PATIENT
  Sex: Male

DRUGS (3)
  1. LENVATINIB [Suspect]
     Active Substance: LENVATINIB
     Indication: RENAL CANCER
     Dosage: 18 MG, QD
     Route: 048
  2. LENVATINIB [Suspect]
     Active Substance: LENVATINIB
     Dosage: 10 MG, QD
     Route: 048
  3. AFINITOR [Suspect]
     Active Substance: EVEROLIMUS
     Indication: RENAL CANCER
     Dosage: 5 MG, QD
     Route: 048

REACTIONS (9)
  - Blood glucose increased [Unknown]
  - Nausea [Recovered/Resolved]
  - Asthenia [Unknown]
  - Protein urine present [Unknown]
  - Blood pressure increased [Recovered/Resolved]
  - Product dose omission [Unknown]
  - Malaise [Unknown]
  - Feeling abnormal [Unknown]
  - Decreased appetite [Recovering/Resolving]
